FAERS Safety Report 12947920 (Version 1)
Quarter: 2016Q4

REPORT INFORMATION
  Report Type: Spontaneous
  Country: US (occurrence: US)
  Receive Date: 20161117
  Receipt Date: 20161117
  Transmission Date: 20170207
  Serious: Yes (Death)
  Sender: FDA-Public Use
  Company Number: US-ROCHE-1854637

PATIENT
  Age: 1 Year
  Sex: Male

DRUGS (1)
  1. ACTIVASE [Suspect]
     Active Substance: ALTEPLASE
     Indication: THROMBOSIS
     Dosage: ADMINISTERED VIA A 0.2 MICRON FILTER
     Route: 065

REACTIONS (1)
  - Thrombosis [Fatal]
